FAERS Safety Report 19637953 (Version 3)
Quarter: 2025Q1

REPORT INFORMATION
  Report Type: Report from Study
  Country: CZ (occurrence: CZ)
  Receive Date: 20210730
  Receipt Date: 20250120
  Transmission Date: 20250408
  Serious: Yes (Congenital Anomaly, Other)
  Sender: UCB
  Company Number: CZ-UCBSA-2021036283

PATIENT

DRUGS (1)
  1. LACOSAMIDE [Suspect]
     Active Substance: LACOSAMIDE
     Indication: Product used for unknown indication
     Dosage: 200 MILLIGRAM, ONCE DAILY (QD)
     Route: 064

REACTIONS (2)
  - Pulmonary artery stenosis [Unknown]
  - Maternal exposure during pregnancy [Unknown]
